FAERS Safety Report 22020589 (Version 2)
Quarter: 2023Q1

REPORT INFORMATION
  Report Type: Spontaneous
  Country: US (occurrence: US)
  Receive Date: 20230222
  Receipt Date: 20230310
  Transmission Date: 20230417
  Serious: No
  Sender: FDA-Public Use
  Company Number: US-PFIZER INC-202300073557

PATIENT
  Age: 44 Year
  Sex: Female

DRUGS (1)
  1. XELJANZ XR [Suspect]
     Active Substance: TOFACITINIB CITRATE
     Dosage: UNK
     Dates: start: 2021, end: 20230202

REACTIONS (7)
  - Psoriasis [Unknown]
  - Fatigue [Unknown]
  - Depression [Unknown]
  - Myalgia [Unknown]
  - Tooth abscess [Not Recovered/Not Resolved]
  - Toothache [Not Recovered/Not Resolved]
  - Haemoglobin decreased [Unknown]

NARRATIVE: CASE EVENT DATE: 20230305
